FAERS Safety Report 5812741-X (Version None)
Quarter: 2008Q3

REPORT INFORMATION
  Report Type: 
  Country: None (occurrence: None)
  Receive Date: 20080717
  Receipt Date: 20080709
  Transmission Date: 20090109
  Serious: Yes (Death, Disabling, Other)
  Sender: FDA-Public Use
  Company Number: US-ALLERGAN-0808499US

PATIENT
  Sex: Male

DRUGS (1)
  1. BOTOX [Suspect]
     Indication: DRUG USE FOR UNKNOWN INDICATION
     Dosage: INJECTIONS
     Route: 065
     Dates: start: 20070701, end: 20070701

REACTIONS (4)
  - DEATH [None]
  - DYSPNOEA [None]
  - MUSCULAR WEAKNESS [None]
  - PNEUMONIA [None]
